FAERS Safety Report 14861261 (Version 2)
Quarter: 2018Q2

REPORT INFORMATION
  Report Type: Spontaneous
  Country: US (occurrence: US)
  Receive Date: 20180508
  Receipt Date: 20180516
  Transmission Date: 20180711
  Serious: Yes (Other)
  Sender: FDA-Public Use
  Company Number: US-JNJFOC-20180506060

PATIENT
  Age: 69 Year
  Sex: Male
  Weight: 85.28 kg

DRUGS (4)
  1. XARELTO [Suspect]
     Active Substance: RIVAROXABAN
     Indication: THROMBOSIS PROPHYLAXIS
     Dosage: 50 MG (DOSE CONFLICTINGLY REPORTED) TO 20 MG
     Route: 048
     Dates: start: 201601, end: 201704
  2. DICLOFENAC POTASSIUM. [Suspect]
     Active Substance: DICLOFENAC POTASSIUM
     Indication: PRODUCT USED FOR UNKNOWN INDICATION
     Route: 065
  3. XARELTO [Suspect]
     Active Substance: RIVAROXABAN
     Indication: THROMBOSIS PROPHYLAXIS
     Dosage: 50 MG (DOSE CONFLICTINGLY REPORTED) TO 20 MG
     Route: 048
     Dates: start: 201601, end: 201704
  4. XARELTO [Suspect]
     Active Substance: RIVAROXABAN
     Indication: KNEE ARTHROPLASTY
     Dosage: 50 MG (DOSE CONFLICTINGLY REPORTED) TO 20 MG
     Route: 048
     Dates: start: 201601, end: 201704

REACTIONS (3)
  - Deep vein thrombosis [Unknown]
  - Haematoma [Unknown]
  - Haemorrhage [Unknown]

NARRATIVE: CASE EVENT DATE: 20170329
